FAERS Safety Report 8375916-4 (Version None)
Quarter: 2012Q2

REPORT INFORMATION
  Report Type: 
  Country: None (occurrence: None)
  Receive Date: 20120522
  Receipt Date: 20120510
  Transmission Date: 20120825
  Serious: Yes (Other)
  Sender: FDA-Public Use
  Company Number: AU-BRISTOL-MYERS SQUIBB COMPANY-16588733

PATIENT
  Age: 75 Year
  Sex: Male

DRUGS (2)
  1. WARFARIN SODIUM [Suspect]
  2. METFORMIN HCL [Suspect]

REACTIONS (1)
  - RENAL IMPAIRMENT [None]
